FAERS Safety Report 18510856 (Version 1)
Quarter: 2020Q4

REPORT INFORMATION
  Report Type: Spontaneous
  Country: US (occurrence: US)
  Receive Date: 20201117
  Receipt Date: 20201117
  Transmission Date: 20210114
  Serious: No
  Sender: FDA-Public Use
  Company Number: US-ALLERGAN-2026866US

PATIENT
  Sex: Female

DRUGS (3)
  1. COMBIGAN [Suspect]
     Active Substance: BRIMONIDINE TARTRATE\TIMOLOL MALEATE
     Indication: GLAUCOMA
     Dosage: 2 GTT, BID
     Route: 047
     Dates: start: 201911
  2. LIPITOR [Concomitant]
     Active Substance: ATORVASTATIN CALCIUM
  3. METOPROLOL. [Interacting]
     Active Substance: METOPROLOL
     Dosage: 25 MG, QPM

REACTIONS (7)
  - Weight increased [Unknown]
  - Discomfort [Unknown]
  - Hypotension [Not Recovered/Not Resolved]
  - Gait disturbance [Unknown]
  - Trichorrhexis [Unknown]
  - Labelled drug-drug interaction medication error [Unknown]
  - Hypertension [Unknown]

NARRATIVE: CASE EVENT DATE: 201911
